FAERS Safety Report 9406981 (Version 1)
Quarter: 2013Q3

REPORT INFORMATION
  Report Type: Spontaneous
  Country: US (occurrence: US)
  Receive Date: 20130718
  Receipt Date: 20130718
  Transmission Date: 20140515
  Serious: No
  Sender: FDA-Public Use
  Company Number: US-MYLANLABS-2012S1015443

PATIENT
  Sex: Male

DRUGS (1)
  1. SULINDAC [Suspect]

REACTIONS (3)
  - Nephrolithiasis [Not Recovered/Not Resolved]
  - Trismus [Not Recovered/Not Resolved]
  - Musculoskeletal pain [Not Recovered/Not Resolved]
